FAERS Safety Report 23392368 (Version 1)
Quarter: 2024Q1

REPORT INFORMATION
  Report Type: Spontaneous
  Country: US (occurrence: US)
  Receive Date: 20240111
  Receipt Date: 20240111
  Transmission Date: 20240410
  Serious: No
  Sender: FDA-Public Use
  Company Number: US-REGENERON PHARMACEUTICALS, INC.-2023-082424

PATIENT
  Age: 85 Year
  Sex: Female

DRUGS (1)
  1. EYLEA [Suspect]
     Active Substance: AFLIBERCEPT
     Indication: Retinal oedema
     Dosage: FORMULATION: UNKNOWN
     Route: 031

REACTIONS (3)
  - Drug effective for unapproved indication [Unknown]
  - Blepharospasm [Recovered/Resolved]
  - Eye pain [Recovered/Resolved]
